FAERS Safety Report 4911972-0 (Version None)
Quarter: 2006Q1

REPORT INFORMATION
  Report Type: 
  Country: None (occurrence: None)
  Receive Date: 20060215
  Receipt Date: 20050413
  Transmission Date: 20060701
  Serious: Yes (Hospitalization, Other)
  Sender: FDA-Public Use
  Company Number: PHHO2005US06107

PATIENT
  Age: 40 Year
  Sex: Female
  Weight: 86 kg

DRUGS (3)
  1. NORVASC [Concomitant]
  2. LABETALOL HCL [Concomitant]
  3. NEORAL [Suspect]
     Indication: RENAL TRANSPLANT
     Dosage: 175 MG, BID
     Route: 048
     Dates: start: 20041227

REACTIONS (17)
  - BACTERIAL INFECTION [None]
  - CENTRAL VENOUS CATHETERISATION [None]
  - CULTURE WOUND POSITIVE [None]
  - DIABETIC FOOT [None]
  - DIARRHOEA [None]
  - ENTEROCOCCAL INFECTION [None]
  - FEEDING DISORDER [None]
  - GASTROENTERITIS [None]
  - NAUSEA [None]
  - OSTEOMYELITIS [None]
  - STAPHYLOCOCCAL INFECTION [None]
  - SUTURE INSERTION [None]
  - URINARY TRACT INFECTION [None]
  - VOMITING [None]
  - WOUND DEBRIDEMENT [None]
  - WOUND HAEMORRHAGE [None]
  - WOUND INFECTION STAPHYLOCOCCAL [None]
